FAERS Safety Report 4346837-9 (Version None)
Quarter: 2004Q1

REPORT INFORMATION
  Report Type: 
  Country: None (occurrence: None)
  Receive Date: 20040329
  Receipt Date: 20031210
  Transmission Date: 20041129
  Serious: No
  Sender: FDA-Public Use
  Company Number: USA031254399

PATIENT
  Sex: Female
  Weight: 80 kg

DRUGS (3)
  1. STRATTERA [Suspect]
     Indication: ATTENTION DEFICIT/HYPERACTIVITY DISORDER
     Dosage: 40 MG/1 DAY
     Dates: start: 20030501
  2. LORTAB [Concomitant]
  3. ALLERTY MEDICATION [Concomitant]

REACTIONS (10)
  - ANOREXIA [None]
  - DEPRESSION [None]
  - IRRITABILITY [None]
  - MIGRAINE [None]
  - NAUSEA [None]
  - NEGATIVE THOUGHTS [None]
  - PAIN [None]
  - ROAD TRAFFIC ACCIDENT [None]
  - SURGERY [None]
  - WEIGHT DECREASED [None]
